FAERS Safety Report 4707499-1 (Version None)
Quarter: 2005Q3

REPORT INFORMATION
  Report Type: 
  Country: None (occurrence: None)
  Receive Date: 20050701
  Receipt Date: 20050622
  Transmission Date: 20060218
  Serious: Yes (Other)
  Sender: FDA-Public Use
  Company Number: UKP05000227

PATIENT
  Sex: Female

DRUGS (1)
  1. ACTONEL [Suspect]
     Dosage: 35 MG, 1/WEEK, ORAL
     Route: 048

REACTIONS (4)
  - ENCEPHALOPATHY [None]
  - HYPERSENSITIVITY [None]
  - SWELLING FACE [None]
  - SWOLLEN TONGUE [None]
